FAERS Safety Report 6940172-8 (Version None)
Quarter: 2010Q3

REPORT INFORMATION
  Report Type: 
  Country: None (occurrence: None)
  Receive Date: 20100820
  Receipt Date: 20100818
  Transmission Date: 20110219
  Serious: Yes (Hospitalization)
  Sender: FDA-Public Use
  Company Number: KV201000267

PATIENT
  Age: 24 Year
  Sex: Female

DRUGS (3)
  1. PREDNISOLONE (PREDNISOLONE) SYRUP [Suspect]
     Indication: PERITONITIS LUPUS
     Dosage: 30 MG, QD, 5 MG, QD, 50 MG, QD, 40 MG, QD
     Dates: start: 20040201, end: 20040101
  2. PREDNISOLONE (PREDNISOLONE) SYRUP [Suspect]
     Indication: PERITONITIS LUPUS
     Dosage: 30 MG, QD, 5 MG, QD, 50 MG, QD, 40 MG, QD
     Dates: start: 19990101
  3. PREDNISOLONE (PREDNISOLONE) SYRUP [Suspect]
     Indication: PERITONITIS LUPUS
     Dosage: 30 MG, QD, 5 MG, QD, 50 MG, QD, 40 MG, QD
     Dates: start: 20040101

REACTIONS (7)
  - ABDOMINAL PAIN UPPER [None]
  - ATRIAL THROMBOSIS [None]
  - CORONARY ARTERY THROMBOSIS [None]
  - DIARRHOEA [None]
  - ILEUS [None]
  - VENA CAVA THROMBOSIS [None]
  - VOMITING [None]
